FAERS Safety Report 4652822-X (Version None)
Quarter: 2005Q2

REPORT INFORMATION
  Report Type: 
  Country: None (occurrence: None)
  Receive Date: 20050427
  Receipt Date: 20050421
  Transmission Date: 20051028
  Serious: Yes (Death)
  Sender: FDA-Public Use
  Company Number: HQWYE191122APR05

PATIENT
  Sex: Female

DRUGS (1)
  1. NEUMEGA (OPRELVEKIN, INJECTION [Suspect]
     Indication: THROMBOCYTOPENIA
     Dosage: 2 DOSES WERE GIVEN, SUBCUTANEOUS
     Route: 058

REACTIONS (1)
  - DEATH [None]
